FAERS Safety Report 18762528 (Version 1)
Quarter: 2021Q1

REPORT INFORMATION
  Report Type: Spontaneous
  Country: US (occurrence: US)
  Receive Date: 20210119
  Receipt Date: 20210119
  Transmission Date: 20210419
  Serious: No
  Sender: FDA-Public Use
  Company Number: None

PATIENT
  Age: 75 Year
  Sex: Male
  Weight: 65.1 kg

DRUGS (15)
  1. ASPIRIN EC 325MG [Concomitant]
     Active Substance: ASPIRIN
  2. ONDANSETRON 4MG [Concomitant]
     Active Substance: ONDANSETRON
  3. LEVOTHYROXINE 50MCG [Concomitant]
     Active Substance: LEVOTHYROXINE
  4. DIPHENHYDRAMINE 50MG/ML [Concomitant]
     Active Substance: DIPHENHYDRAMINE
  5. PROTONIX [Concomitant]
     Active Substance: PANTOPRAZOLE SODIUM
  6. CYRAMZA 100MG/10ML [Concomitant]
  7. DEXAMETHASONE 10MG/2.5ML [Concomitant]
  8. DIPHENOXYLATE?ATROPINE 2.5?0.025MG [Concomitant]
  9. VITAMIN D 5000 UNITS [Concomitant]
  10. FLUOROURACIL 1GM/20ML [Concomitant]
  11. POTASSIUM CHLORIDE ER 20MEQ [Concomitant]
  12. CAPECITABINE. [Suspect]
     Active Substance: CAPECITABINE
     Indication: RECTAL CANCER
     Route: 048
     Dates: start: 20201112, end: 20210119
  13. LOPERAMIDE 2MG [Concomitant]
     Active Substance: LOPERAMIDE
  14. LASIX [Concomitant]
     Active Substance: FUROSEMIDE
  15. MIRALAX 17GM [Concomitant]

REACTIONS (5)
  - Skin exfoliation [None]
  - Peripheral swelling [None]
  - Temperature intolerance [None]
  - Abdominal distension [None]
  - Erythema [None]

NARRATIVE: CASE EVENT DATE: 20210119
